FAERS Safety Report 8090771 (Version 4)
Quarter: 2013Q1

REPORT INFORMATION
  Report Type: Report from Study
  Country: SE (occurrence: SE)
  Receive Date: 20110815
  Receipt Date: 20130218
  Transmission Date: 20140127
  Serious: Yes (Death, Hospitalization, Other)
  Sender: FDA-Public Use
  Company Number: SE-ABBOTT-11P-150-0845277-00

PATIENT
  Age: 75 Year
  Sex: Male
  Weight: 80 kg

DRUGS (8)
  1. ZEMPLAR CAPSULES [Suspect]
     Indication: RENAL FAILURE CHRONIC
     Route: 048
     Dates: start: 20110622, end: 20110729
  2. CALCIUM CARBONATE [Concomitant]
     Indication: HYPERPARATHYROIDISM SECONDARY
     Dates: start: 20110622
  3. TRIATEC [Concomitant]
     Indication: HYPERTENSION
     Dates: start: 20080801
  4. EPREX [Concomitant]
     Indication: ANAEMIA
     Dosage: 4000 UNITS/LITER PER WEEK
     Dates: start: 20110203, end: 201107
  5. FURIX [Concomitant]
     Indication: OEDEMA
     Dates: start: 20100701, end: 20110726
  6. FURIX [Concomitant]
     Dates: start: 20110726
  7. AMLODIPIN [Concomitant]
     Indication: HYPERTENSION
     Dates: start: 20101223, end: 201107
  8. BISOPROLOL [Concomitant]
     Indication: CARDIAC FAILURE CONGESTIVE
     Dates: start: 20110107, end: 201107

REACTIONS (10)
  - Left ventricular failure [Fatal]
  - Acute myocardial infarction [Fatal]
  - Renal failure chronic [Fatal]
  - Chest pain [Unknown]
  - General physical health deterioration [Unknown]
  - Hypotension [Unknown]
  - Cardiovascular disorder [Unknown]
  - Anuria [Unknown]
  - Dyspnoea [Fatal]
  - Acute myocardial infarction [Unknown]
